FAERS Safety Report 5939114-3 (Version None)
Quarter: 2008Q4

REPORT INFORMATION
  Report Type: 
  Country: None (occurrence: None)
  Receive Date: 20081103
  Receipt Date: 20081030
  Transmission Date: 20090506
  Serious: Yes (Other)
  Sender: FDA-Public Use
  Company Number: B0544187A

PATIENT
  Age: 3 Year
  Sex: Male

DRUGS (5)
  1. FLUNASE (JAPAN) [Suspect]
     Dosage: 100MCG TWICE PER DAY
     Route: 045
     Dates: start: 20081021, end: 20081023
  2. ONON [Concomitant]
     Route: 048
  3. HOKUNALIN [Concomitant]
     Route: 062
  4. MUCODYNE [Concomitant]
     Route: 048
  5. MUCOSAL [Concomitant]
     Route: 048

REACTIONS (4)
  - ASTHMA [None]
  - CHOKING [None]
  - COUGH [None]
  - DRUG DISPENSING ERROR [None]
